FAERS Safety Report 6183667-X (Version None)
Quarter: 2009Q2

REPORT INFORMATION
  Report Type: 
  Country: None (occurrence: None)
  Receive Date: 20090508
  Receipt Date: 20090427
  Transmission Date: 20091009
  Serious: Yes (Other)
  Sender: FDA-Public Use
  Company Number: JP-PFIZER INC-2009177869

PATIENT
  Age: 9 Year

DRUGS (16)
  1. DAUNOMYCIN [Suspect]
     Indication: ACUTE LYMPHOCYTIC LEUKAEMIA
     Dosage: 100 MG/M2, UNK
     Route: 042
  2. PREDNISOLONE AND PREDNISOLONE STEAGLATE [Suspect]
     Indication: ACUTE LYMPHOCYTIC LEUKAEMIA
     Dosage: 60 MG/M2, UNK
     Route: 042
  3. VINCRISTINE SULFATE [Suspect]
     Indication: ACUTE LYMPHOCYTIC LEUKAEMIA
     Dosage: 7.5 MG/M2, UNK
     Route: 042
  4. VINCRISTINE SULFATE [Suspect]
     Dosage: 6.0 MG/M2, UNK
     Route: 042
  5. CYCLOPHOSPHAMIDE [Suspect]
     Indication: ACUTE LYMPHOCYTIC LEUKAEMIA
     Dosage: 2400 MG/M2, UNK
     Route: 042
  6. CYCLOPHOSPHAMIDE [Suspect]
     Dosage: 1200 MG/M2, UNK
     Route: 042
  7. CYTARABINE [Suspect]
     Indication: ACUTE LYMPHOCYTIC LEUKAEMIA
     Dosage: 1050 MG/M2, UNK
     Route: 042
  8. CYTARABINE [Suspect]
     Dosage: 1600 MG/M2, UNK
     Route: 042
  9. CYTARABINE [Suspect]
     Dosage: 1200 MG/M2, UNK
     Route: 042
  10. CYTARABINE [Suspect]
     Dosage: 1600 MG/M2, UNK
     Route: 042
  11. DOXORUBICIN HCL [Suspect]
     Indication: ACUTE LYMPHOCYTIC LEUKAEMIA
     Dosage: 100 MG/M2, UNK
     Route: 042
  12. ETOPOSIDE [Suspect]
     Indication: ACUTE LYMPHOCYTIC LEUKAEMIA
  13. L-ASPARAGINASE [Suspect]
     Indication: ACUTE LYMPHOCYTIC LEUKAEMIA
     Dosage: 54000 KU/M2
     Route: 042
  14. MERCAPTOPURINE [Suspect]
     Indication: ACUTE LYMPHOCYTIC LEUKAEMIA
     Dosage: 60 MG/M2, UNK
  15. DEXAMETHASONE [Suspect]
     Indication: ACUTE LYMPHOCYTIC LEUKAEMIA
     Dosage: 6 MG/M2, UNK
     Route: 042
  16. BUSULFAN [Suspect]
     Indication: ACUTE LYMPHOCYTIC LEUKAEMIA

REACTIONS (11)
  - ALOPECIA [None]
  - BONE MARROW FAILURE [None]
  - CANDIDIASIS [None]
  - CLOSTRIDIAL INFECTION [None]
  - DIARRHOEA [None]
  - HEPATIC FAILURE [None]
  - HYPOPHAGIA [None]
  - INFECTION [None]
  - LIVER FUNCTION TEST ABNORMAL [None]
  - PROTEINURIA [None]
  - VOMITING [None]
